FAERS Safety Report 9483340 (Version 1)
Quarter: 2013Q3

REPORT INFORMATION
  Report Type: Spontaneous
  Country: US (occurrence: US)
  Receive Date: 20130828
  Receipt Date: 20130828
  Transmission Date: 20140515
  Serious: No
  Sender: FDA-Public Use
  Company Number: US-TEVA-427256USA

PATIENT
  Age: 71 Year
  Sex: Female
  Weight: 88.53 kg

DRUGS (8)
  1. PROAIR HFA [Suspect]
     Indication: ASTHMA
     Route: 055
     Dates: start: 20130706
  2. ALLEGRA [Concomitant]
  3. ALBUTEROL [Concomitant]
     Indication: ASTHMA
  4. NIZATIDINE [Concomitant]
  5. ATENOLOL [Concomitant]
     Indication: HYPERTENSION
  6. AMLODIPINE [Concomitant]
     Indication: HYPERTENSION
  7. VENTOLIN [Concomitant]
     Route: 055
  8. HYDROCHLOROTHIAZIDE [Concomitant]
     Indication: HYPERTENSION

REACTIONS (1)
  - Nasal congestion [Not Recovered/Not Resolved]
